FAERS Safety Report 16435328 (Version 1)
Quarter: 2019Q2

REPORT INFORMATION
  Report Type: Spontaneous
  Country: JP (occurrence: JP)
  Receive Date: 20190614
  Receipt Date: 20190614
  Transmission Date: 20190711
  Serious: Yes (Hospitalization, Other)
  Sender: FDA-Public Use
  Company Number: JP-009507513-2011SP039294

PATIENT
  Age: 31 Year
  Sex: Female

DRUGS (2)
  1. PREGNYL [Suspect]
     Active Substance: CHORIOGONADOTROPIN ALFA
     Indication: OVULATION INDUCTION
  2. MENOTROPINS [Suspect]
     Active Substance: MENOTROPINS
     Indication: OVULATION INDUCTION
     Dosage: 150-300 IU

REACTIONS (4)
  - Ovarian hyperstimulation syndrome [Recovering/Resolving]
  - Renal infarct [Recovering/Resolving]
  - Embolism [Recovering/Resolving]
  - Cerebral infarction [Recovering/Resolving]
